FAERS Safety Report 8413953-1 (Version None)
Quarter: 2012Q2

REPORT INFORMATION
  Report Type: 
  Country: None (occurrence: None)
  Receive Date: 20120605
  Receipt Date: 20120522
  Transmission Date: 20120825
  Serious: Yes (Hospitalization)
  Sender: FDA-Public Use
  Company Number: FR-CELGENEUS-056-21880-12052714

PATIENT
  Sex: Male

DRUGS (20)
  1. REVLIMID [Suspect]
     Dosage: 25 MILLIGRAM
     Route: 048
     Dates: start: 20090925
  2. PAMIDRONATE DISODIUM [Concomitant]
     Route: 065
     Dates: start: 20100831, end: 20110329
  3. REVLIMID [Suspect]
     Dosage: 20 MILLIGRAM
     Route: 048
     Dates: start: 20100305
  4. VELCADE [Suspect]
     Indication: MULTIPLE MYELOMA
     Dosage: 2.6 MILLIGRAM
     Route: 041
     Dates: start: 20090415, end: 20090519
  5. ALKERAN [Suspect]
     Route: 065
     Dates: start: 20100506, end: 20100506
  6. REVLIMID [Suspect]
     Dosage: 25 MILLIGRAM
     Route: 048
     Dates: start: 20100126
  7. VELCADE [Suspect]
     Dosage: 2 MILLIGRAM
     Route: 041
     Dates: start: 20100629, end: 20100629
  8. DEXAMETHASONE SODIUM PHOSPHATE [Suspect]
     Indication: MULTIPLE MYELOMA
     Route: 041
     Dates: start: 20090415, end: 20090519
  9. DEXAMETHASONE SODIUM POSPHATE [Suspect]
     Route: 041
     Dates: start: 20090625, end: 20090925
  10. DEXAMETHASONE SODIUM POSPHATE [Suspect]
     Route: 041
     Dates: start: 20100305
  11. ALKERAN [Suspect]
     Route: 065
     Dates: start: 20100629, end: 20100629
  12. VELCADE [Suspect]
     Dosage: 2 MILLIGRAM
     Route: 041
     Dates: start: 20100126, end: 20100305
  13. DOXORUBICIN HCL [Concomitant]
     Dosage: 60 MILLIGRAM
     Route: 065
     Dates: start: 20100305
  14. ASPIRIN [Concomitant]
     Route: 065
     Dates: start: 20100831, end: 20110329
  15. DEXAMETHASONE SODIUM PHOSPHATE [Suspect]
     Route: 041
     Dates: start: 20100831, end: 20110329
  16. REVLIMID [Suspect]
     Indication: MULTIPLE MYELOMA
     Dosage: 25 MILLIGRAM
     Route: 048
     Dates: start: 20090625
  17. THALIDOMIDE [Suspect]
     Indication: MULTIPLE MYELOMA
     Dosage: 100 MILLIGRAM
     Route: 048
     Dates: start: 20100831, end: 20110329
  18. VELCADE [Suspect]
     Dosage: 2 MILLIGRAM
     Route: 041
     Dates: start: 20100831, end: 20110329
  19. ALKERAN [Suspect]
     Indication: MULTIPLE MYELOMA
     Dosage: 18 MILLIGRAM
     Route: 048
     Dates: start: 20090415, end: 20090519
  20. DOXORUBICIN HCL [Concomitant]
     Dosage: 60 MILLIGRAM
     Route: 065
     Dates: start: 20100126

REACTIONS (1)
  - ADENOCARCINOMA [None]
